FAERS Safety Report 6448639-6 (Version None)
Quarter: 2009Q4

REPORT INFORMATION
  Report Type: 
  Country: None (occurrence: None)
  Receive Date: 20091120
  Receipt Date: 20091110
  Transmission Date: 20100525
  Serious: Yes (Other)
  Sender: FDA-Public Use
  Company Number: US-ELI_LILLY_AND_COMPANY-US200911002896

PATIENT
  Age: 38 Year
  Sex: Female

DRUGS (4)
  1. BYETTA [Suspect]
     Indication: TYPE 2 DIABETES MELLITUS
     Dosage: 5 UG, 2/D
     Route: 058
     Dates: start: 20090201, end: 20090101
  2. BYETTA [Suspect]
     Dosage: 10 UG, 2/D
     Route: 058
     Dates: start: 20090101, end: 20091001
  3. FORTAMET [Concomitant]
     Dosage: 1000 MG, DAILY (1/D)
  4. COZAAR [Concomitant]
     Dosage: 50 MG, DAILY (1/D)

REACTIONS (1)
  - IDIOPATHIC THROMBOCYTOPENIC PURPURA [None]
